FAERS Safety Report 16580824 (Version 1)
Quarter: 2019Q3

REPORT INFORMATION
  Report Type: Spontaneous
  Country: US (occurrence: US)
  Receive Date: 20190716
  Receipt Date: 20190716
  Transmission Date: 20191004
  Serious: No
  Sender: FDA-Public Use
  Company Number: US-GALDERMA-US19006472

PATIENT
  Age: 46 Year
  Sex: Female

DRUGS (3)
  1. DIFFERIN GEL [Suspect]
     Active Substance: ADAPALENE
     Dosage: 0.1%
     Route: 061
     Dates: end: 20190125
  2. DIFFERIN GEL [Suspect]
     Active Substance: ADAPALENE
     Indication: ACNE
     Dosage: 0.1%
     Route: 061
     Dates: start: 20190115
  3. DIFFERIN GEL [Suspect]
     Active Substance: ADAPALENE
     Dosage: 0.1%
     Route: 061

REACTIONS (5)
  - Overdose [Recovered/Resolved]
  - Underdose [Recovered/Resolved]
  - Inappropriate schedule of product administration [Recovered/Resolved]
  - Skin hyperpigmentation [Recovering/Resolving]
  - Skin burning sensation [Recovering/Resolving]

NARRATIVE: CASE EVENT DATE: 20190115
